FAERS Safety Report 7565224-3 (Version None)
Quarter: 2011Q2

REPORT INFORMATION
  Report Type: 
  Country: None (occurrence: None)
  Receive Date: 20110622
  Receipt Date: 20110617
  Transmission Date: 20111010
  Serious: Yes (Hospitalization)
  Sender: FDA-Public Use
  Company Number: US-MERCK-1106USA02741

PATIENT
  Sex: Female

DRUGS (3)
  1. FOSAMAX [Suspect]
     Route: 048
     Dates: start: 20000101, end: 20100101
  2. FOSAMAX PLUS D [Suspect]
     Route: 048
     Dates: start: 20070101, end: 20100101
  3. FOSAMAX [Suspect]
     Route: 048
     Dates: end: 20100101

REACTIONS (1)
  - FEMUR FRACTURE [None]
